FAERS Safety Report 8942911 (Version 1)
Quarter: 2012Q4

REPORT INFORMATION
  Report Type: Spontaneous
  Country: US (occurrence: None)
  Receive Date: 20121121
  Receipt Date: 20121121
  Transmission Date: 20130627
  Serious: Yes (Other)
  Sender: FDA-Public Use
  Company Number: 2515444201200008

PATIENT
  Sex: Female

DRUGS (2)
  1. BANANA BOAT SPORT BODY AND SCALP SPF 30 [Suspect]
     Indication: PROPHYLAXIS AGAINST SOLAR RADIATION
     Route: 061
     Dates: start: 20121020
  2. THYROID MEDICINE [Concomitant]

REACTIONS (6)
  - Erythema [None]
  - Application site pain [None]
  - Application site pain [None]
  - Application site pruritus [None]
  - Application site swelling [None]
  - Application site vesicles [None]
